FAERS Safety Report 25150483 (Version 5)
Quarter: 2025Q3

REPORT INFORMATION
  Report Type: Spontaneous
  Country: US (occurrence: US)
  Receive Date: 20250402
  Receipt Date: 20250816
  Transmission Date: 20251021
  Serious: Yes (Death, Hospitalization)
  Sender: ALEXION PHARMACEUTICALS
  Company Number: US-AstraZeneca-CH-00838381A

PATIENT
  Age: 78 Year
  Sex: Female
  Weight: 41.73 kg

DRUGS (5)
  1. TAGRISSO [Suspect]
     Active Substance: OSIMERTINIB
     Dosage: 80 MILLIGRAM, QD
     Dates: start: 20241212, end: 20250204
  2. DECADRON [Concomitant]
     Active Substance: DEXAMETHASONE
     Route: 065
  3. DECADRON [Concomitant]
     Active Substance: DEXAMETHASONE
     Route: 065
  4. KEPPRA [Concomitant]
     Active Substance: LEVETIRACETAM
     Indication: Prophylaxis
     Dosage: 500 MILLIGRAM, BID
     Route: 065
  5. VITAMIN D [Concomitant]
     Active Substance: VITAMIN D NOS
     Dosage: 5000 INTERNATIONAL UNIT, QD
     Route: 065

REACTIONS (3)
  - Interstitial lung disease [Fatal]
  - Pneumonitis [Fatal]
  - Lung infiltration [Unknown]

NARRATIVE: CASE EVENT DATE: 20250218
